FAERS Safety Report 9943751 (Version 3)
Quarter: 2014Q1

REPORT INFORMATION
  Report Type: Spontaneous
  Country: US (occurrence: US)
  Receive Date: 20140303
  Receipt Date: 20140328
  Transmission Date: 20141002
  Serious: Yes (Hospitalization)
  Sender: FDA-Public Use
  Company Number: US-ACTELION-A-US2014-95383

PATIENT
  Age: 79 Year
  Sex: Female

DRUGS (2)
  1. OPSUMIT [Suspect]
     Indication: PULMONARY ARTERIAL HYPERTENSION
     Dosage: 10 MG, UNK
     Route: 048
     Dates: start: 20140127
  2. REVATIO [Concomitant]

REACTIONS (3)
  - Knee arthroplasty [Recovering/Resolving]
  - Malaise [Unknown]
  - Fluid overload [Unknown]
